FAERS Safety Report 14697998 (Version 1)
Quarter: 2018Q1

REPORT INFORMATION
  Report Type: Spontaneous
  Country: RU (occurrence: RU)
  Receive Date: 20180330
  Receipt Date: 20180330
  Transmission Date: 20180509
  Serious: Yes (Other)
  Sender: FDA-Public Use
  Company Number: RU-ROCHE-2093130

PATIENT
  Sex: Female

DRUGS (9)
  1. EPIRUBICIN [Concomitant]
     Active Substance: EPIRUBICIN
     Indication: BREAST CANCER
     Route: 065
     Dates: start: 201501, end: 201604
  2. PACLITAXEL. [Concomitant]
     Active Substance: PACLITAXEL
     Indication: BREAST CANCER
     Route: 065
     Dates: start: 201501, end: 201604
  3. CYCLOPHOSPHAMIDE. [Concomitant]
     Active Substance: CYCLOPHOSPHAMIDE
     Indication: BREAST CANCER
     Route: 065
     Dates: start: 201501, end: 201604
  4. TRASTUZUMAB. [Suspect]
     Active Substance: TRASTUZUMAB
     Indication: BREAST CANCER
     Dosage: 4 CYCLES: PACLITAXEL + TRASTUZUMAB / ABP 980
     Route: 065
     Dates: start: 201501, end: 201604
  5. TRASTUZUMAB. [Suspect]
     Active Substance: TRASTUZUMAB
     Route: 065
     Dates: start: 201707
  6. ERIBULIN [Concomitant]
     Active Substance: ERIBULIN
     Dosage: 1.4 MG / M2 AT 1, 8 DAYS
     Route: 065
     Dates: start: 201708
  7. TAMOXIFEN [Concomitant]
     Active Substance: TAMOXIFEN
  8. PERTUZUMAB. [Suspect]
     Active Substance: PERTUZUMAB
     Indication: HER-2 POSITIVE BREAST CANCER
     Route: 065
     Dates: start: 201707
  9. CARBOPLATIN. [Concomitant]
     Active Substance: CARBOPLATIN
     Route: 065
     Dates: start: 201707

REACTIONS (11)
  - Hypotension [Unknown]
  - Diarrhoea [Unknown]
  - Transaminases increased [Recovered/Resolved]
  - Hepatic function abnormal [Recovered/Resolved]
  - Neutropenia [Unknown]
  - Portal vein thrombosis [Recovered/Resolved]
  - Anaphylactic reaction [Unknown]
  - Loss of consciousness [Unknown]
  - Febrile neutropenia [Unknown]
  - Asthenia [Unknown]
  - Rash [Unknown]

NARRATIVE: CASE EVENT DATE: 201705
